FAERS Safety Report 5836129-0 (Version None)
Quarter: 2008Q3

REPORT INFORMATION
  Report Type: 
  Country: None (occurrence: None)
  Receive Date: 20080805
  Receipt Date: 20080721
  Transmission Date: 20090109
  Serious: Yes (Hospitalization)
  Sender: FDA-Public Use
  Company Number: 2008001722

PATIENT
  Sex: Male

DRUGS (9)
  1. ERLOTINIB      (ERLOTINIB) (TABLET) [Suspect]
     Indication: NON-SMALL CELL LUNG CANCER
     Dosage: 150 MG, QD, ORAL
     Route: 048
     Dates: start: 20080424, end: 20080623
  2. PEMETREXED       (PEMETREXED) [Suspect]
     Indication: NON-SMALL CELL LUNG CANCER
     Dosage: 500 MG/M2, Q 21 DAYS), INTRAVENOUS
     Route: 042
     Dates: start: 20080424, end: 20080605
  3. ORAMORPH SR [Concomitant]
  4. DEPAKENE [Concomitant]
  5. OMEPRAZOLE [Concomitant]
  6. ATROVENT [Concomitant]
  7. DURAGESIC-100 [Concomitant]
  8. SIMVASTATIN [Concomitant]
  9. PULMICORT [Concomitant]

REACTIONS (2)
  - ENCEPHALOPATHY [None]
  - OLIGURIA [None]
